FAERS Safety Report 5646437-4 (Version None)
Quarter: 2008Q1

REPORT INFORMATION
  Report Type: 
  Country: None (occurrence: None)
  Receive Date: 20080227
  Receipt Date: 20080218
  Transmission Date: 20080703
  Serious: Yes (Other)
  Sender: FDA-Public Use
  Company Number: GXKR2008GB01516

PATIENT
  Age: 1 Hour
  Sex: Female

DRUGS (1)
  1. FLUOXETINE [Suspect]
     Dosage: TRANSPLACENTAL
     Route: 064
     Dates: end: 20070911

REACTIONS (4)
  - DRUG EXPOSURE DURING PREGNANCY [None]
  - DRUG WITHDRAWAL SYNDROME [None]
  - FLUSHING [None]
  - HYPERHIDROSIS [None]
